FAERS Safety Report 5900316-3 (Version None)
Quarter: 2008Q3

REPORT INFORMATION
  Report Type: 
  Country: None (occurrence: None)
  Receive Date: 20080926
  Receipt Date: 20080925
  Transmission Date: 20090109
  Serious: Yes (Other)
  Sender: FDA-Public Use
  Company Number: A0737472A

PATIENT
  Sex: Female

DRUGS (1)
  1. ALLI [Suspect]

REACTIONS (4)
  - ANAEMIA [None]
  - FLATULENCE [None]
  - GASTROINTESTINAL DISORDER [None]
  - MENSTRUATION IRREGULAR [None]
